FAERS Safety Report 5975174-1 (Version None)
Quarter: 2008Q4

REPORT INFORMATION
  Report Type: 
  Country: None (occurrence: None)
  Receive Date: 20081202
  Receipt Date: 20080618
  Transmission Date: 20090506
  Serious: No
  Sender: FDA-Public Use
  Company Number: US-ABBOTT-08P-163-0457986-00

PATIENT
  Sex: Female

DRUGS (5)
  1. LUPRON [Suspect]
     Indication: ENDOMETRIOSIS
     Route: 030
     Dates: start: 20080519, end: 20080519
  2. LUPRON [Suspect]
     Dates: start: 20080616, end: 20080616
  3. ALLEGRA D 24 HOUR [Concomitant]
     Indication: SEASONAL ALLERGY
     Route: 048
  4. VYTORIN [Concomitant]
     Indication: BLOOD CHOLESTEROL
     Route: 048
  5. MULTI-VITAMIN [Concomitant]
     Indication: VITAMIN SUPPLEMENTATION
     Route: 048

REACTIONS (2)
  - ARTHRALGIA [None]
  - MUSCLE SPASMS [None]
